FAERS Safety Report 4295740-1 (Version None)
Quarter: 2004Q1

REPORT INFORMATION
  Report Type: 
  Country: None (occurrence: None)
  Receive Date: 20040216
  Receipt Date: 20031023
  Transmission Date: 20041129
  Serious: No
  Sender: FDA-Public Use
  Company Number: US-GLAXOSMITHKLINE-A0431412A

PATIENT
  Age: 36 Year
  Sex: Male
  Weight: 81.8 kg

DRUGS (1)
  1. LAMICTAL [Suspect]
     Indication: BIPOLAR DISORDER
     Dosage: 25MG PER DAY
     Route: 048
     Dates: start: 20031006, end: 20031021

REACTIONS (2)
  - PRURITUS [None]
  - RASH [None]
